FAERS Safety Report 10517381 (Version 1)
Quarter: 2014Q4

REPORT INFORMATION
  Report Type: Spontaneous
  Country: US (occurrence: None)
  Receive Date: 20141003
  Receipt Date: 20141003
  Transmission Date: 20150528
  Serious: Yes (Other)
  Sender: FDA-Public Use
  Company Number: 2013-17239

PATIENT
  Sex: Female

DRUGS (8)
  1. ALENDRONATE SODIUM. [Suspect]
     Active Substance: ALENDRONATE SODIUM
     Indication: OSTEOPOROSIS
     Dosage: PRESCRIBED AND IN A FORESEEABLE MANNER, ORAL
     Route: 048
     Dates: start: 2006, end: 2012
  2. FOSAMAX [Suspect]
     Active Substance: ALENDRONATE SODIUM
     Indication: OSTEOPENIA
     Dosage: PRESCRIBED AND IN A FORESEEABLE MANNER, ORAL
     Route: 048
     Dates: start: 2006, end: 2012
  3. BONIVA [Suspect]
     Active Substance: IBANDRONATE SODIUM
     Indication: OSTEOPOROSIS
     Dosage: PRESCRIBED AND IN A FORESEEABLE MANNER, ORAL
     Route: 048
  4. ALENDRONATE SODIUM. [Suspect]
     Active Substance: ALENDRONATE SODIUM
     Indication: OSTEOPENIA
     Dosage: PRESCRIBED AND IN A FORESEEABLE MANNER, ORAL
     Route: 048
     Dates: start: 2006, end: 2012
  5. IBANDRONATE [Suspect]
     Active Substance: IBANDRONATE SODIUM
     Indication: OSTEOPOROSIS
     Dosage: PRESCRIBED AND IN A FORESEEABLE MANNER, ORAL
     Route: 048
  6. IBANDRONATE [Suspect]
     Active Substance: IBANDRONATE SODIUM
     Indication: OSTEOPENIA
     Dosage: PRESCRIBED AND IN A FORESEEABLE MANNER, ORAL
     Route: 048
  7. FOSAMAX [Suspect]
     Active Substance: ALENDRONATE SODIUM
     Indication: OSTEOPOROSIS
     Dosage: PRESCRIBED AND IN A FORESEEABLE MANNER, ORAL
     Route: 048
     Dates: start: 2006, end: 2012
  8. BONIVA [Suspect]
     Active Substance: IBANDRONATE SODIUM
     Indication: OSTEOPENIA
     Dosage: PRESCRIBED AND IN A FORESEEABLE MANNER, ORAL
     Route: 048

REACTIONS (2)
  - Incorrect drug administration duration [None]
  - Femur fracture [None]

NARRATIVE: CASE EVENT DATE: 201301
